FAERS Safety Report 5339207-8 (Version None)
Quarter: 2007Q2

REPORT INFORMATION
  Report Type: 
  Country: None (occurrence: None)
  Receive Date: 20070530
  Receipt Date: 20070518
  Transmission Date: 20071010
  Serious: Yes (Hospitalization)
  Sender: FDA-Public Use
  Company Number: BR-PFIZER INC-2007041750

PATIENT
  Age: 32 Year
  Sex: Female

DRUGS (1)
  1. DEPO-PROVERA SUSPENSION/INJ [Suspect]
     Dosage: FREQ:MOST RECENT INJECTION  THIRD, TRIMESTRAL
     Route: 030
     Dates: start: 20070512, end: 20070512

REACTIONS (3)
  - EMOTIONAL DISORDER [None]
  - INJECTION SITE INFECTION [None]
  - PAIN [None]
